FAERS Safety Report 9179222 (Version 7)
Quarter: 2014Q2

REPORT INFORMATION
  Report Type: Spontaneous
  Country: US (occurrence: US)
  Receive Date: 20130321
  Receipt Date: 20140519
  Transmission Date: 20141212
  Serious: Yes (Hospitalization, Other)
  Sender: FDA-Public Use
  Company Number: US-009507513-1303USA009742

PATIENT
  Sex: Female
  Weight: 81.63 kg

DRUGS (7)
  1. FOSAMAX [Suspect]
     Indication: OSTEOPENIA
     Dosage: 70 MG, UNK
     Route: 048
     Dates: start: 2005, end: 200812
  2. ALENDRONATE SODIUM [Suspect]
     Indication: OSTEOPENIA
     Dosage: 70 MG, UNK
     Route: 048
     Dates: start: 200812, end: 201003
  3. VITAMINS (UNSPECIFIED) [Concomitant]
     Indication: ROUTINE HEALTH MAINTENANCE
     Dosage: 500 MG, UNK
     Route: 048
     Dates: start: 2002
  4. CALCIUM (UNSPECIFIED) [Concomitant]
     Indication: ROUTINE HEALTH MAINTENANCE
     Dosage: UNK
     Route: 048
     Dates: start: 2002
  5. ASCORBIC ACID [Concomitant]
     Indication: ROUTINE HEALTH MAINTENANCE
     Dosage: UNK, QD
     Route: 048
     Dates: start: 2002
  6. VITAMIN D (UNSPECIFIED) [Concomitant]
     Indication: ROUTINE HEALTH MAINTENANCE
     Dosage: UNK, QD
     Route: 048
     Dates: start: 2002
  7. SINEMET [Concomitant]
     Indication: PARKINSON^S DISEASE
     Dosage: 25-100 X 3
     Dates: start: 20030926

REACTIONS (23)
  - Intramedullary rod insertion [Unknown]
  - Femur fracture [Recovered/Resolved]
  - Low turnover osteopathy [Unknown]
  - Spinal osteoarthritis [Unknown]
  - Groin pain [Unknown]
  - Osteoarthritis [Unknown]
  - Low turnover osteopathy [Unknown]
  - Cataract [Unknown]
  - Cataract operation [Unknown]
  - Osteoarthritis [Unknown]
  - Sciatica [Unknown]
  - Bone lesion [Unknown]
  - Bone lesion [Unknown]
  - Epidermal growth factor receptor decreased [Unknown]
  - Suicidal ideation [Unknown]
  - Sluggishness [Unknown]
  - Limb deformity [Unknown]
  - Arthritis [Unknown]
  - Anxiety [Unknown]
  - Oedema peripheral [Unknown]
  - Constipation [Unknown]
  - Musculoskeletal pain [Unknown]
  - Dizziness [Unknown]
